FAERS Safety Report 7710191-2 (Version None)
Quarter: 2011Q3

REPORT INFORMATION
  Report Type: 
  Country: None (occurrence: None)
  Receive Date: 20110825
  Receipt Date: 20110719
  Transmission Date: 20111222
  Serious: Yes (Other)
  Sender: FDA-Public Use
  Company Number: US-MYLANLABS-2011S1015232

PATIENT
  Sex: Female

DRUGS (2)
  1. ACARBOSE [Suspect]
  2. LEVETIRACETAM [Suspect]
     Indication: EPILEPSY

REACTIONS (2)
  - CONVULSION [None]
  - ABDOMINAL PAIN UPPER [None]
